FAERS Safety Report 7456757-9 (Version None)
Quarter: 2011Q2

REPORT INFORMATION
  Report Type: 
  Country: None (occurrence: None)
  Receive Date: 20110504
  Receipt Date: 20101130
  Transmission Date: 20111010
  Serious: Yes (Death)
  Sender: FDA-Public Use
  Company Number: US-ASTRAZENECA-2010SE56835

PATIENT
  Age: 55 Year
  Sex: Male

DRUGS (3)
  1. SEROQUEL [Suspect]
     Indication: DEPRESSION
     Dosage: 200 MG
     Route: 048
  2. BETA BLOCKER [Concomitant]
  3. SEROQUEL [Suspect]
     Indication: BIPOLAR DISORDER
     Dosage: 200 MG
     Route: 048

REACTIONS (1)
  - SUDDEN DEATH [None]
